FAERS Safety Report 22006327 (Version 1)
Quarter: 2023Q1

REPORT INFORMATION
  Report Type: Spontaneous
  Country: CO (occurrence: CO)
  Receive Date: 20230217
  Receipt Date: 20230217
  Transmission Date: 20230417
  Serious: Yes (Hospitalization, Other)
  Sender: FDA-Public Use
  Company Number: CO-VERTEX PHARMACEUTICALS-2023-001854

PATIENT
  Age: 13 Year
  Sex: Male
  Weight: 24 kg

DRUGS (7)
  1. TRIKAFTA [Suspect]
     Active Substance: ELEXACAFTOR\IVACAFTOR\TEZACAFTOR
     Indication: Cystic fibrosis
     Dosage: 100, 50, 75 AND 150 MG, EVERY 24 HOURS
     Route: 048
     Dates: start: 20220325, end: 20230130
  2. TOBRAMYCIN [Concomitant]
     Active Substance: TOBRAMYCIN
     Indication: Cystic fibrosis
     Dosage: EVERY 24 HOURS
     Route: 055
  3. DORNASE ALFA [Concomitant]
     Active Substance: DORNASE ALFA
     Indication: Cystic fibrosis
     Dosage: 2.5 MG EVERY 24 HOURS
     Route: 055
  4. DORNASE ALFA [Concomitant]
     Active Substance: DORNASE ALFA
     Dosage: 2500 IU EVERY 24 HOURS
     Route: 055
  5. SALMETEROL [Concomitant]
     Active Substance: SALMETEROL
     Indication: Cystic fibrosis
     Dosage: 25 MICROGRAM EVERY 24 HOURS
     Route: 055
  6. SALMETEROL [Concomitant]
     Active Substance: SALMETEROL
     Dosage: 125 MICROGRAM EVERY 24 HOURS
     Route: 055
  7. ALBUTEROL [Concomitant]
     Active Substance: ALBUTEROL
     Indication: Cystic fibrosis
     Dosage: 10 DROPS EVERY 24 HOURS
     Route: 055

REACTIONS (2)
  - Infective pulmonary exacerbation of cystic fibrosis [Recovering/Resolving]
  - Product dose omission issue [Recovering/Resolving]

NARRATIVE: CASE EVENT DATE: 20230131
